FAERS Safety Report 6108860-3 (Version None)
Quarter: 2009Q1

REPORT INFORMATION
  Report Type: 
  Country: None (occurrence: None)
  Receive Date: 20090306
  Receipt Date: 20090224
  Transmission Date: 20090719
  Serious: Yes (Other)
  Sender: FDA-Public Use
  Company Number: 2009US000249

PATIENT
  Age: 73 Year
  Sex: Male
  Weight: 105.2 kg

DRUGS (24)
  1. LEXISCAN [Suspect]
     Indication: SCAN MYOCARDIAL PERFUSION
     Dates: start: 20090121, end: 20090121
  2. MYOVIEW (TETROFOSMIN) [Concomitant]
  3. ZOCOR [Concomitant]
  4. ACE INHIBITOR NOS [Concomitant]
  5. ANGIOTENSIN RECEPTOR BLOCKER [Concomitant]
  6. ACCUPRIL [Concomitant]
  7. ACTOPLUS MEMT (METFORMIN HYDROCHLORIDE, PIOGLITAZONE HYDROCHLORIDE) [Concomitant]
  8. AVODART [Concomitant]
  9. AZATHIOPRINE [Concomitant]
  10. DIOVAN [Concomitant]
  11. JANUVIA [Concomitant]
  12. LEVOTHYROXINE SODIUM [Concomitant]
  13. SIMVASTATIN [Concomitant]
  14. TEKTURNA [Concomitant]
  15. ADVAIR DISKUS 100/50 [Concomitant]
  16. ALBUTEROL [Concomitant]
  17. FISH OIL (FISH OIL) [Concomitant]
  18. FLONASE (FLUTICASONE PROPIONATE) NASAL SPRAY [Concomitant]
  19. FOLIC ACID [Concomitant]
  20. IRON (IRON) [Concomitant]
  21. MAGNESIUM (MAGNESIUM) [Concomitant]
  22. NEXIUM [Concomitant]
  23. SINGULAIR [Concomitant]
  24. ZYRTEC [Concomitant]

REACTIONS (6)
  - APHASIA [None]
  - ASTHENIA [None]
  - HEART RATE DECREASED [None]
  - HYPOTENSION [None]
  - INCOHERENT [None]
  - SYNCOPE [None]
